FAERS Safety Report 9820097 (Version 1)
Quarter: 2013Q4

REPORT INFORMATION
  Report Type: Spontaneous
  Country: US (occurrence: None)
  Receive Date: 20131223
  Receipt Date: 20131223
  Transmission Date: 20140711
  Serious: Yes (Other)
  Sender: FDA-Public Use
  Company Number: 221309

PATIENT
  Sex: Female

DRUGS (2)
  1. PICATO [Suspect]
     Route: 061
     Dates: start: 20130404, end: 20130405
  2. ANTIBIOTIC CREAM (ANTIBIOTIC FOR TOPICAL USE)CREAM) [Concomitant]

REACTIONS (3)
  - Application site erythema [None]
  - Application site pain [None]
  - Application site swelling [None]
